FAERS Safety Report 13335642 (Version 1)
Quarter: 2017Q1

REPORT INFORMATION
  Report Type: Spontaneous
  Country: GB (occurrence: GB)
  Receive Date: 20170314
  Receipt Date: 20170314
  Transmission Date: 20170428
  Serious: Yes (Other)
  Sender: FDA-Public Use
  Company Number: GB-MYLANLABS-2017M1015495

PATIENT

DRUGS (3)
  1. INOSITOL [Concomitant]
     Active Substance: INOSITOL
  2. CITALOPRAM MYLAN [Suspect]
     Active Substance: CITALOPRAM HYDROBROMIDE
     Indication: SOCIAL ANXIETY DISORDER
     Route: 048
     Dates: start: 201503, end: 201603
  3. ST JOHN^S WORT [Concomitant]
     Active Substance: ST. JOHN^S WORT

REACTIONS (5)
  - Loss of libido [Not Recovered/Not Resolved]
  - Disturbance in sexual arousal [Not Recovered/Not Resolved]
  - Fatigue [Not Recovered/Not Resolved]
  - Blunted affect [Not Recovered/Not Resolved]
  - Hypoaesthesia [Not Recovered/Not Resolved]

NARRATIVE: CASE EVENT DATE: 201604
